FAERS Safety Report 25517662 (Version 2)
Quarter: 2025Q3

REPORT INFORMATION
  Report Type: Spontaneous
  Country: EU (occurrence: EU)
  Receive Date: 20250704
  Receipt Date: 20250809
  Transmission Date: 20251021
  Serious: Yes (Hospitalization, Other)
  Sender: ALEXION PHARMACEUTICALS
  Company Number: EU-ASTRAZENECA-202506GLO024253ES

PATIENT
  Age: 85 Year

DRUGS (2)
  1. OMEPRAZOLE [Suspect]
     Active Substance: OMEPRAZOLE
     Indication: Abdominal pain upper
     Route: 065
  2. DABIGATRAN [Suspect]
     Active Substance: DABIGATRAN
     Indication: Embolic stroke
     Dosage: 150 MILLIGRAM, Q12H
     Route: 065

REACTIONS (6)
  - Fatigue [Recovered/Resolved]
  - Weight decreased [Recovered/Resolved]
  - Haematochezia [Recovered/Resolved]
  - Gastric ulcer haemorrhage [Unknown]
  - International normalised ratio abnormal [Unknown]
  - Condition aggravated [Unknown]
